FAERS Safety Report 15581894 (Version 1)
Quarter: 2018Q4

REPORT INFORMATION
  Report Type: Spontaneous
  Country: US (occurrence: US)
  Receive Date: 20181102
  Receipt Date: 20181102
  Transmission Date: 20190205
  Serious: No
  Sender: FDA-Public Use
  Company Number: US-RADIUS HEALTH INC.-2018US001921

PATIENT
  Age: 71 Year
  Sex: Female

DRUGS (2)
  1. TYMLOS [Suspect]
     Active Substance: ABALOPARATIDE
     Indication: FEMUR FRACTURE
     Dosage: 80 MCG, ONCE A DAY
     Route: 058
     Dates: start: 20180621
  2. TYMLOS [Suspect]
     Active Substance: ABALOPARATIDE
     Indication: OSTEOPOROSIS POSTMENOPAUSAL
     Dosage: 80 MCG, QD
     Route: 058
     Dates: start: 20180626

REACTIONS (4)
  - Erythema [Recovering/Resolving]
  - Pruritus [Unknown]
  - Off label use [Not Recovered/Not Resolved]
  - Sluggishness [Unknown]

NARRATIVE: CASE EVENT DATE: 20180626
